FAERS Safety Report 8909969 (Version 1)
Quarter: 2012Q4

REPORT INFORMATION
  Report Type: 
  Country: US (occurrence: US)
  Receive Date: 20121115
  Receipt Date: 20121115
  Transmission Date: 20130627
  Serious: No
  Sender: FDA-Public Use
  Company Number: US-PFIZER INC-2012282956

PATIENT
  Sex: Male

DRUGS (2)
  1. COLESTIPOL HCL [Suspect]
     Indication: GASTROINTESTINAL DISORDER
     Dosage: 2 g, Daily
  2. COLESTIPOL HCL [Suspect]
     Dosage: 1 g, Daily

REACTIONS (4)
  - Urine odour abnormal [Unknown]
  - Abnormal faeces [Unknown]
  - Feeling abnormal [Unknown]
  - Off label use [Unknown]
